FAERS Safety Report 9134929 (Version 1)
Quarter: 2013Q1

REPORT INFORMATION
  Report Type: Report from Study
  Country: US (occurrence: US)
  Receive Date: 20130304
  Receipt Date: 20130304
  Transmission Date: 20140127
  Serious: Yes (Hospitalization, Other)
  Sender: FDA-Public Use
  Company Number: US-UCBSA-079572

PATIENT
  Sex: Female

DRUGS (2)
  1. KEPPRA XR [Suspect]
     Indication: EPILEPSY
     Dosage: DOSE : 1000 MG
  2. ZOLOFT [Concomitant]
     Indication: DEPRESSION
     Dosage: DOSE : 50 MG

REACTIONS (2)
  - Caesarean section [Unknown]
  - Pregnancy [Recovered/Resolved]
